FAERS Safety Report 23927517 (Version 1)
Quarter: 2024Q2

REPORT INFORMATION
  Report Type: Spontaneous
  Country: US (occurrence: US)
  Receive Date: 20240531
  Receipt Date: 20240531
  Transmission Date: 20240716
  Serious: No
  Sender: FDA-Public Use
  Company Number: US-RADIUS HEALTH INC.-2023US003473

PATIENT
  Age: 56 Year
  Sex: Female

DRUGS (1)
  1. TYMLOS [Suspect]
     Active Substance: ABALOPARATIDE
     Indication: Senile osteoporosis
     Dosage: 80 MICROGRAM, QD
     Route: 058
     Dates: start: 20230512

REACTIONS (5)
  - Myalgia [Unknown]
  - Pain in extremity [Unknown]
  - Bone pain [Unknown]
  - Injection site haemorrhage [Unknown]
  - Product quality issue [Unknown]

NARRATIVE: CASE EVENT DATE: 20230629
